FAERS Safety Report 13407321 (Version 2)
Quarter: 2017Q2

REPORT INFORMATION
  Report Type: Spontaneous
  Country: US (occurrence: US)
  Receive Date: 20170405
  Receipt Date: 20170504
  Transmission Date: 20170830
  Serious: Yes (Hospitalization, Other)
  Sender: FDA-Public Use
  Company Number: US-BIOMARINAP-US-2017-113512

PATIENT
  Age: 0 Day
  Sex: Female
  Weight: 3.36 kg

DRUGS (4)
  1. KUVAN [Suspect]
     Active Substance: SAPROPTERIN DIHYDROCHLORIDE
     Indication: TETRAHYDROBIOPTERIN DEFICIENCY
     Dosage: 400 MG, QD
     Route: 064
  2. L DOPA [Concomitant]
     Active Substance: LEVODOPA
     Indication: TETRAHYDROBIOPTERIN DEFICIENCY
     Dosage: UNK, QID
     Route: 064
  3. 5-HYDROXYTRYPTOPHAN [Concomitant]
     Active Substance: OXITRIPTAN
     Indication: TETRAHYDROBIOPTERIN DEFICIENCY
     Dosage: UNK, BID
     Route: 064
  4. FOLATE [Concomitant]
     Active Substance: FOLATE SODIUM
     Indication: PRODUCT USED FOR UNKNOWN INDICATION
     Route: 064

REACTIONS (2)
  - Meconium aspiration syndrome [Recovered/Resolved]
  - Foetal distress syndrome [Recovered/Resolved]

NARRATIVE: CASE EVENT DATE: 20170310
